FAERS Safety Report 8199771-0 (Version None)
Quarter: 2012Q1

REPORT INFORMATION
  Report Type: 
  Country: None (occurrence: None)
  Receive Date: 20120312
  Receipt Date: 20120229
  Transmission Date: 20120608
  Serious: Yes (Other)
  Sender: FDA-Public Use
  Company Number: CA-BRISTOL-MYERS SQUIBB COMPANY-16430068

PATIENT
  Sex: Female

DRUGS (5)
  1. INDOMETHACIN [Concomitant]
     Indication: GOUT
     Dates: start: 20111105, end: 20111108
  2. ONGLYZA [Suspect]
     Indication: TYPE 2 DIABETES MELLITUS
     Dates: start: 20111108
  3. ULORIC [Suspect]
     Indication: GOUT
     Route: 048
     Dates: start: 20111108
  4. METFORMIN HCL [Suspect]
     Indication: TYPE 2 DIABETES MELLITUS
  5. ALLOPURINOL [Concomitant]
     Indication: GOUT
     Dates: start: 20111104

REACTIONS (1)
  - GLOMERULAR FILTRATION RATE DECREASED [None]
